FAERS Safety Report 9830398 (Version 2)
Quarter: 2014Q1

REPORT INFORMATION
  Report Type: Spontaneous
  Country: US (occurrence: US)
  Receive Date: 20140120
  Receipt Date: 20140120
  Transmission Date: 20141002
  Serious: No
  Sender: FDA-Public Use
  Company Number: US-MYLANLABS-2013S1022944

PATIENT
  Age: 68 Year
  Sex: Male
  Weight: 81.65 kg

DRUGS (5)
  1. IRBESARTAN AND HYDROCHLOROTHIAZIDE TABLETS USP [Suspect]
     Indication: BLOOD PRESSURE INCREASED
     Route: 048
     Dates: start: 201308
  2. ACETAMINOPHEN PM [Suspect]
     Indication: PAIN
     Route: 048
  3. TRAMADOL [Concomitant]
     Indication: ARTHRITIS
  4. ENBREL [Concomitant]
     Indication: ARTHRITIS
  5. FLEXERIL [Concomitant]
     Indication: ARTHRITIS

REACTIONS (1)
  - Coeliac disease [Not Recovered/Not Resolved]
